FAERS Safety Report 7017126-9 (Version None)
Quarter: 2010Q3

REPORT INFORMATION
  Report Type: 
  Country: None (occurrence: None)
  Receive Date: 20100928
  Receipt Date: 20100915
  Transmission Date: 20110219
  Serious: No
  Sender: FDA-Public Use
  Company Number: US-BIOGENIDEC-2010BI009754

PATIENT
  Age: 48 Year
  Sex: Male

DRUGS (1)
  1. TYSABRI [Suspect]
     Indication: MULTIPLE SCLEROSIS
     Route: 042
     Dates: start: 20080117

REACTIONS (7)
  - COAGULOPATHY [None]
  - CONFUSIONAL STATE [None]
  - EAR PAIN [None]
  - HAEMORRHAGE [None]
  - NASAL CONGESTION [None]
  - PAIN [None]
  - RHINORRHOEA [None]
